FAERS Safety Report 17413255 (Version 2)
Quarter: 2020Q1

REPORT INFORMATION
  Report Type: Spontaneous
  Country: CL (occurrence: CL)
  Receive Date: 20200213
  Receipt Date: 20200306
  Transmission Date: 20200409
  Serious: Yes (Death, Other)
  Sender: FDA-Public Use
  Company Number: CL-ABBVIE-20K-034-3274128-00

PATIENT
  Age: 47 Year
  Sex: Female

DRUGS (8)
  1. FENTANYL. [Concomitant]
     Active Substance: FENTANYL
     Indication: PRODUCT USED FOR UNKNOWN INDICATION
  2. FOLIC ACID. [Concomitant]
     Active Substance: FOLIC ACID
     Indication: PRODUCT USED FOR UNKNOWN INDICATION
  3. AZACITIDINE. [Concomitant]
     Active Substance: AZACITIDINE
     Indication: PRODUCT USED FOR UNKNOWN INDICATION
     Dosage: 75 MG/M2,7 DAYS
     Route: 042
     Dates: start: 20191219
  4. ACYCLOVIR. [Concomitant]
     Active Substance: ACYCLOVIR
     Indication: PRODUCT USED FOR UNKNOWN INDICATION
  5. CLONAZEPAM. [Concomitant]
     Active Substance: CLONAZEPAM
     Indication: PRODUCT USED FOR UNKNOWN INDICATION
  6. VENETOCLAX. [Suspect]
     Active Substance: VENETOCLAX
     Indication: ACUTE MYELOID LEUKAEMIA
     Route: 048
     Dates: start: 20191219, end: 20200203
  7. OMERAZOLE [Concomitant]
     Active Substance: OMEPRAZOLE
     Indication: PRODUCT USED FOR UNKNOWN INDICATION
  8. VORICONAZOLE. [Concomitant]
     Active Substance: VORICONAZOLE
     Indication: PRODUCT USED FOR UNKNOWN INDICATION
     Route: 048
     Dates: start: 20191219

REACTIONS (34)
  - Pneumonia [Unknown]
  - Liver abscess [Unknown]
  - Areflexia [Unknown]
  - Abdominal distension [Unknown]
  - Intra-abdominal fluid collection [Unknown]
  - Pulmonary artery dilatation [Unknown]
  - Encephalitis [Unknown]
  - Altered state of consciousness [Unknown]
  - Anaemia [Unknown]
  - Aplasia [Unknown]
  - Lower respiratory tract infection fungal [Unknown]
  - Febrile neutropenia [Recovered/Resolved]
  - Cerebral fungal infection [Unknown]
  - Febrile neutropenia [Unknown]
  - Somnolence [Unknown]
  - Phlebitis [Unknown]
  - Brain oedema [Unknown]
  - Pyrexia [Unknown]
  - Thrombocytopenia [Unknown]
  - Loss of consciousness [Unknown]
  - Infection [Recovered/Resolved]
  - Colitis [Unknown]
  - Infection [Fatal]
  - Pleural effusion [Unknown]
  - Cardiac ventricular disorder [Unknown]
  - Myelodysplastic syndrome [Unknown]
  - Abdominal pain [Unknown]
  - Apnoea [Unknown]
  - Hemiparesis [Unknown]
  - Fungal infection [Unknown]
  - Cerebral infarction [Unknown]
  - Off label use [Unknown]
  - Stupor [Unknown]
  - Ascites [Unknown]

NARRATIVE: CASE EVENT DATE: 20200123
